FAERS Safety Report 5843162-1 (Version None)
Quarter: 2008Q3

REPORT INFORMATION
  Report Type: 
  Country: None (occurrence: None)
  Receive Date: 20080813
  Receipt Date: 20080729
  Transmission Date: 20090109
  Serious: Yes (Other)
  Sender: FDA-Public Use
  Company Number: PHHO2008BR09803

PATIENT
  Age: 36 Year
  Sex: Male

DRUGS (3)
  1. FTY [Suspect]
     Indication: RENAL TRANSPLANT
  2. CYCLOSPORINE [Suspect]
     Indication: RENAL TRANSPLANT
  3. PREDNISOLONE [Concomitant]
     Indication: RENAL TRANSPLANT

REACTIONS (9)
  - ANAEMIA [None]
  - ANOREXIA [None]
  - CHEST DISCOMFORT [None]
  - DYSPNOEA [None]
  - HEPATOSPLENOMEGALY [None]
  - HYPOTENSION [None]
  - NEPHROPATHY TOXIC [None]
  - PYREXIA [None]
  - VISCERAL LEISHMANIASIS [None]
